FAERS Safety Report 7878636-5 (Version None)
Quarter: 2011Q4

REPORT INFORMATION
  Report Type: 
  Country: None (occurrence: None)
  Receive Date: 20111101
  Receipt Date: 20111020
  Transmission Date: 20120403
  Serious: Yes (Hospitalization)
  Sender: FDA-Public Use
  Company Number: US-CUBIST-2011S1000490

PATIENT
  Age: 77 Year
  Sex: Female
  Weight: 76.6 kg

DRUGS (2)
  1. VANCOMYCIN HCL [Suspect]
     Dates: start: 20110723
  2. VANCOMYCIN HCL [Suspect]
     Indication: CELLULITIS
     Route: 042
     Dates: start: 20110706, end: 20110720

REACTIONS (1)
  - INFECTION [None]
